FAERS Safety Report 14455802 (Version 1)
Quarter: 2018Q1

REPORT INFORMATION
  Report Type: Spontaneous
  Country: US (occurrence: US)
  Receive Date: 20180130
  Receipt Date: 20180130
  Transmission Date: 20180509
  Serious: Yes (Hospitalization)
  Sender: FDA-Public Use
  Company Number: US-ACCORD-062915

PATIENT
  Age: 47 Year
  Sex: Male

DRUGS (2)
  1. TOPIRAMATE. [Suspect]
     Active Substance: TOPIRAMATE
     Indication: EATING DISORDER
  2. LITHIUM. [Interacting]
     Active Substance: LITHIUM
     Indication: MANIA
     Dosage: TAKING FOR THE PAST YEAR

REACTIONS (4)
  - Drug interaction [Unknown]
  - Renal failure [Recovering/Resolving]
  - Off label use [Unknown]
  - Toxicity to various agents [Unknown]
